FAERS Safety Report 4651515-2 (Version None)
Quarter: 2005Q2

REPORT INFORMATION
  Report Type: 
  Country: None (occurrence: None)
  Receive Date: 20050503
  Receipt Date: 20041012
  Transmission Date: 20051028
  Serious: Yes (Disabling)
  Sender: FDA-Public Use
  Company Number: DE-MERCK-0410DEU00408

PATIENT
  Age: 50 Year
  Sex: Female

DRUGS (5)
  1. VIOXX [Suspect]
     Route: 048
     Dates: start: 20020101, end: 20040801
  2. VIOXX [Suspect]
     Indication: BACK DISORDER
     Route: 048
     Dates: start: 20020101, end: 20040801
  3. IBUPROFEN [Concomitant]
     Route: 065
  4. HYPERICIN [Concomitant]
     Route: 065
  5. HORMONES (UNSPECIFIED) [Suspect]
     Route: 065

REACTIONS (4)
  - DEEP VEIN THROMBOSIS [None]
  - LYMPHOEDEMA [None]
  - PHLEBOTHROMBOSIS [None]
  - THROMBOSIS [None]
